FAERS Safety Report 4811212-7 (Version None)
Quarter: 2005Q4

REPORT INFORMATION
  Report Type: 
  Country: None (occurrence: None)
  Receive Date: 20051027
  Receipt Date: 20050923
  Transmission Date: 20060501
  Serious: Yes (Other)
  Sender: FDA-Public Use
  Company Number: US-JNJFOC-20051005138

PATIENT
  Sex: Female

DRUGS (7)
  1. IBUPROFEN [Suspect]
     Indication: ARTHRITIS
  2. ASPIRIN [Suspect]
     Indication: ARTHRITIS
  3. FLURBIPROFEN [Suspect]
     Indication: ARTHRITIS
  4. NAPROXEN [Suspect]
     Indication: ARTHRITIS
  5. BEXTRA [Concomitant]
  6. CELEBREX [Concomitant]
  7. MOBIC [Concomitant]

REACTIONS (2)
  - COLITIS COLLAGENOUS [None]
  - DRUG INEFFECTIVE [None]
